FAERS Safety Report 4692651-4 (Version None)
Quarter: 2005Q2

REPORT INFORMATION
  Report Type: 
  Country: None (occurrence: None)
  Receive Date: 20050617
  Receipt Date: 20031029
  Transmission Date: 20051028
  Serious: Yes (Hospitalization)
  Sender: FDA-Public Use
  Company Number: PHBS2003JP12092

PATIENT
  Age: 21 Year
  Sex: Female
  Weight: 42 kg

DRUGS (11)
  1. TRAZODONE HCL [Suspect]
     Dosage: 25 MG/D
     Route: 048
  2. TRAZODONE HCL [Suspect]
     Dosage: 50 MG/D
     Route: 048
  3. MILNACIPRAN HYDROCHLORIDE [Suspect]
     Dosage: 25 MG/D
     Route: 048
  4. CLOMIPRAMINE HCL [Suspect]
     Indication: PAIN IN EXTREMITY
     Dosage: 10 MG/DAY
     Route: 048
  5. CLOMIPRAMINE HCL [Suspect]
     Dosage: 25 MG/DAY
     Route: 048
  6. CLOMIPRAMINE HCL [Suspect]
     Dosage: 20 MG/D
     Route: 048
  7. KETAMINE HCL [Concomitant]
     Dosage: 5 MG/D
     Route: 065
  8. LIDOCAINE [Concomitant]
     Route: 042
  9. PHENTOLAMINE MESYLATE [Suspect]
     Route: 042
  10. STEROIDS NOS [Concomitant]
     Route: 042
  11. CA ANTAGONIST [Concomitant]
     Route: 042

REACTIONS (13)
  - ANGER [None]
  - COMA [None]
  - CRYING [None]
  - DELIRIUM [None]
  - DEPRESSED LEVEL OF CONSCIOUSNESS [None]
  - EXCITABILITY [None]
  - IRRITABILITY [None]
  - NEUROPATHY [None]
  - PERSECUTORY DELUSION [None]
  - PYREXIA [None]
  - SOLILOQUY [None]
  - SOMNOLENCE [None]
  - TREMOR [None]
